FAERS Safety Report 12000668 (Version 1)
Quarter: 2016Q1

REPORT INFORMATION
  Report Type: Spontaneous
  Country: US (occurrence: US)
  Receive Date: 20160204
  Receipt Date: 20160204
  Transmission Date: 20160526
  Serious: No
  Sender: FDA-Public Use
  Company Number: US-PFIZER INC-2016009647

PATIENT
  Age: 33 Year
  Sex: Male
  Weight: 93 kg

DRUGS (3)
  1. VENLAFAXINE HCL [Suspect]
     Active Substance: VENLAFAXINE HYDROCHLORIDE
     Indication: ANXIETY
     Dosage: 75 MG CAPSULE IN THE MORNING
     Route: 048
     Dates: start: 201511, end: 2015
  2. ALPRAZOLAM. [Concomitant]
     Active Substance: ALPRAZOLAM
     Indication: PANIC ATTACK
     Dosage: 0.5 MG, UNK(BEFORE BEDTIME)
     Dates: start: 201511
  3. VENLAFAXINE HCL [Suspect]
     Active Substance: VENLAFAXINE HYDROCHLORIDE
     Indication: PANIC ATTACK

REACTIONS (7)
  - Anxiety [Unknown]
  - Condition aggravated [Unknown]
  - Panic attack [Unknown]
  - Feeling abnormal [Unknown]
  - Stress [Unknown]
  - Insomnia [Unknown]
  - Feeling of despair [Unknown]

NARRATIVE: CASE EVENT DATE: 2015
